FAERS Safety Report 7336551-X (Version None)
Quarter: 2011Q1

REPORT INFORMATION
  Report Type: 
  Country: None (occurrence: None)
  Receive Date: 20110307
  Receipt Date: 20110221
  Transmission Date: 20110831
  Serious: Yes (Hospitalization)
  Sender: FDA-Public Use
  Company Number: US-ELI_LILLY_AND_COMPANY-US201102006257

PATIENT
  Sex: Male

DRUGS (2)
  1. LANTUS [Concomitant]
     Indication: INSULIN-REQUIRING TYPE 2 DIABETES MELLITUS
     Dosage: 70 U, DAILY (1/D)
     Route: 058
  2. HUMALOG [Suspect]
     Dates: start: 20080101

REACTIONS (6)
  - VISUAL ACUITY REDUCED [None]
  - CATARACT [None]
  - PHOTOPHOBIA [None]
  - ARTHRITIS [None]
  - HEADACHE [None]
  - ROAD TRAFFIC ACCIDENT [None]
